FAERS Safety Report 24028341 (Version 1)
Quarter: 2024Q2

REPORT INFORMATION
  Report Type: Report from Study
  Country: US (occurrence: US)
  Receive Date: 20240628
  Receipt Date: 20240628
  Transmission Date: 20240716
  Serious: Yes (Other)
  Sender: FDA-Public Use
  Company Number: US-002147023-NVSC2024US131516

PATIENT
  Age: 48 Year
  Sex: Female

DRUGS (1)
  1. TASIGNA [Suspect]
     Active Substance: NILOTINIB
     Indication: Chronic myeloid leukaemia
     Dosage: UNK (2 YEARS OR MORE AGO)
     Route: 065

REACTIONS (4)
  - Memory impairment [Unknown]
  - Libido decreased [Unknown]
  - Dyspnoea [Unknown]
  - Fatigue [Unknown]
